FAERS Safety Report 4893302-6 (Version None)
Quarter: 2006Q1

REPORT INFORMATION
  Report Type: 
  Country: None (occurrence: None)
  Receive Date: 20060127
  Receipt Date: 20060118
  Transmission Date: 20060701
  Serious: Yes (Life-Threatening, Hospitalization)
  Sender: FDA-Public Use
  Company Number: FR-JNJFOC-20051204499

PATIENT
  Age: 51 Year
  Sex: Female
  Weight: 54 kg

DRUGS (5)
  1. REMICADE [Suspect]
     Indication: CROHN'S DISEASE
     Route: 042
  2. IMUREL [Suspect]
     Indication: CROHN'S DISEASE
     Route: 048
     Dates: start: 20041101, end: 20050209
  3. ENTOCORT [Suspect]
     Indication: CROHN'S DISEASE
     Route: 048
  4. MESALAMINE [Concomitant]
     Indication: CROHN'S DISEASE
     Route: 048
  5. FIVASA [Concomitant]
     Indication: CROHN'S DISEASE
     Route: 065

REACTIONS (18)
  - ABSCESS [None]
  - ACUTE RESPIRATORY FAILURE [None]
  - AGITATION [None]
  - ATRIAL FIBRILLATION [None]
  - BONE TUBERCULOSIS [None]
  - CELLULITIS [None]
  - CONFUSIONAL STATE [None]
  - DRUG INTERACTION [None]
  - ENTEROCUTANEOUS FISTULA [None]
  - GRANULOMA [None]
  - PANCYTOPENIA [None]
  - PERITONITIS [None]
  - PHLEBITIS SUPERFICIAL [None]
  - PLEURAL EFFUSION [None]
  - RESPIRATORY ACIDOSIS [None]
  - SEPSIS [None]
  - THROMBOCYTOPENIA [None]
  - TUBERCULOSIS GASTROINTESTINAL [None]
